FAERS Safety Report 8354339-8 (Version None)
Quarter: 2012Q2

REPORT INFORMATION
  Report Type: 
  Country: None (occurrence: None)
  Receive Date: 20120511
  Receipt Date: 20110121
  Transmission Date: 20120825
  Serious: No
  Sender: FDA-Public Use
  Company Number: US-TEVA-2011000350

PATIENT
  Sex: Male
  Weight: 118.95 kg

DRUGS (11)
  1. FELODIPINE [Concomitant]
     Dates: start: 20050101, end: 20110101
  2. POTASSIUM CHLORIDE [Concomitant]
     Dates: start: 20050101
  3. CELEXA [Concomitant]
     Dates: start: 20090601
  4. NEXIUM [Concomitant]
     Dates: start: 20050101, end: 20101101
  5. TALWIN [Concomitant]
     Dates: start: 20040201
  6. AVALIDE [Concomitant]
     Dates: start: 20050101, end: 20110101
  7. IBUPROFEN [Concomitant]
     Dates: start: 20040201, end: 20101001
  8. FLEXERIL [Concomitant]
     Dates: start: 20040201
  9. ATENOLOL [Concomitant]
     Dates: start: 20050101
  10. NUVIGIL [Suspect]
     Indication: SLEEP APNOEA SYNDROME
     Dosage: 150 MILLIGRAM;
     Route: 048
     Dates: start: 20100101, end: 20100201
  11. NUVIGIL [Suspect]
     Dosage: 250 MILLIGRAM;
     Route: 048

REACTIONS (1)
  - DRUG INEFFECTIVE [None]
